FAERS Safety Report 19264565 (Version 1)
Quarter: 2021Q2

REPORT INFORMATION
  Report Type: Spontaneous
  Country: IT (occurrence: IT)
  Receive Date: 20210517
  Receipt Date: 20210517
  Transmission Date: 20210717
  Serious: No
  Sender: FDA-Public Use
  Company Number: IT-LUPIN PHARMACEUTICALS INC.-2021-03263

PATIENT
  Age: 49 Year
  Sex: Female

DRUGS (3)
  1. CLOBETASOL [Suspect]
     Active Substance: CLOBETASOL
     Indication: BURNING SENSATION
     Dosage: UNK UNK, BID
     Route: 061
  2. CLOBETASOL [Suspect]
     Active Substance: CLOBETASOL
     Indication: PRURITUS
  3. CLOBETASOL [Suspect]
     Active Substance: CLOBETASOL
     Indication: ERYTHEMA

REACTIONS (1)
  - Dermatosis [Recovered/Resolved]
